FAERS Safety Report 20619161 (Version 1)
Quarter: 2022Q1

REPORT INFORMATION
  Report Type: Spontaneous
  Country: US (occurrence: US)
  Receive Date: 20220322
  Receipt Date: 20220322
  Transmission Date: 20220423
  Serious: Yes (Other)
  Sender: FDA-Public Use
  Company Number: US-Hikma Pharmaceuticals USA Inc.-US-H14001-21-04906

PATIENT
  Sex: Female

DRUGS (1)
  1. BUTORPHANOL [Suspect]
     Active Substance: BUTORPHANOL
     Indication: Migraine
     Dosage: 2 SPRAYS
     Route: 045

REACTIONS (4)
  - Product use issue [Unknown]
  - Drug ineffective [Unknown]
  - Drug abuse [Unknown]
  - Product tampering [Unknown]
